FAERS Safety Report 8953496 (Version 1)
Quarter: 2012Q4

REPORT INFORMATION
  Report Type: 
  Country: GB (occurrence: GB)
  Receive Date: 20121206
  Receipt Date: 20121206
  Transmission Date: 20130627
  Serious: Yes (Other)
  Sender: FDA-Public Use
  Company Number: GB-GLAXOSMITHKLINE-B0848947A

PATIENT
  Age: 28 Year
  Sex: Male
  Weight: 60.32 kg

DRUGS (10)
  1. LAMOTRIGINE [Suspect]
     Indication: DEPRESSED MOOD
     Dosage: 175MG Per day
     Route: 048
     Dates: start: 20120901, end: 20121120
  2. PROPANOL [Concomitant]
  3. DIAZEPAM [Concomitant]
  4. ZOLMITRIPTAN [Concomitant]
  5. DICLOFENAC [Concomitant]
  6. PARACETAMOL [Concomitant]
  7. CO-CODAMOL [Concomitant]
  8. DOMPERIDONE [Concomitant]
  9. COD LIVER OIL [Concomitant]
  10. MULTIVITAMIN [Concomitant]

REACTIONS (1)
  - Nightmare [Not Recovered/Not Resolved]
